FAERS Safety Report 10763002 (Version 6)
Quarter: 2016Q4

REPORT INFORMATION
  Report Type: Spontaneous
  Country: US (occurrence: US)
  Receive Date: 20150204
  Receipt Date: 20161213
  Transmission Date: 20170206
  Serious: Yes (Hospitalization, Other)
  Sender: FDA-Public Use
  Company Number: US-009507513-1502USA000585

PATIENT
  Sex: Female

DRUGS (3)
  1. ALENDRONATE SODIUM. [Suspect]
     Active Substance: ALENDRONATE SODIUM
     Indication: OSTEOPOROSIS
     Dosage: 70 MG, UNKNOWN
     Route: 048
     Dates: start: 200902, end: 201111
  2. FOSAMAX [Suspect]
     Active Substance: ALENDRONATE SODIUM
     Indication: OSTEOPOROSIS
     Dosage: UNK, UNKNOWN
     Route: 048
     Dates: start: 1996
  3. FOSAMAX [Suspect]
     Active Substance: ALENDRONATE SODIUM
     Dosage: 70 MG, UNKNOWN
     Route: 048
     Dates: end: 200901

REACTIONS (39)
  - Femur fracture [Unknown]
  - Ankle fracture [Unknown]
  - Dental prosthesis placement [Unknown]
  - Osteopenia [Unknown]
  - Thoracic vertebral fracture [Unknown]
  - Sciatica [Unknown]
  - Back pain [Not Recovered/Not Resolved]
  - Hypothyroidism [Unknown]
  - Hyperlipidaemia [Unknown]
  - Macular degeneration [Unknown]
  - Fall [Unknown]
  - Osteoporosis [Unknown]
  - Periodontal operation [Unknown]
  - Dental implantation [Unknown]
  - Scoliosis [Unknown]
  - Osteoarthritis [Unknown]
  - Hypercholesterolaemia [Unknown]
  - Cardiac disorder [Unknown]
  - Hypertension [Unknown]
  - Lumbar spinal stenosis [Unknown]
  - Back pain [Unknown]
  - Rotator cuff syndrome [Unknown]
  - Seasonal allergy [Unknown]
  - Femur fracture [Unknown]
  - Spondylitis [Unknown]
  - Retinal detachment [Unknown]
  - Fracture nonunion [Unknown]
  - Coronary artery disease [Unknown]
  - Meniscus injury [Unknown]
  - Muscular weakness [Unknown]
  - Intervertebral disc degeneration [Unknown]
  - Oral surgery [Unknown]
  - Tooth extraction [Unknown]
  - Asthma [Not Recovered/Not Resolved]
  - Lower limb fracture [Unknown]
  - Spinal laminectomy [Unknown]
  - Depression [Unknown]
  - Cataract [Unknown]
  - Drug hypersensitivity [Unknown]

NARRATIVE: CASE EVENT DATE: 2000
